FAERS Safety Report 4715491-6 (Version None)
Quarter: 2005Q3

REPORT INFORMATION
  Report Type: 
  Country: None (occurrence: None)
  Receive Date: 20050715
  Receipt Date: 20050715
  Transmission Date: 20060218
  Serious: Yes (Life-Threatening, Hospitalization)
  Sender: FDA-Public Use
  Company Number: None

PATIENT
  Sex: Female
  Weight: 16.5563 kg

DRUGS (14)
  1. TOBI [Suspect]
     Indication: BRONCHITIS
     Dosage: BID AEROSOLIZE
     Dates: start: 20050614, end: 20050704
  2. TOBI [Suspect]
     Indication: CYSTIC FIBROSIS
     Dosage: BID AEROSOLIZE
     Dates: start: 20050614, end: 20050704
  3. CREON MT [Concomitant]
  4. THERAVITE [Concomitant]
  5. ZITHROMAX [Concomitant]
  6. ALBUTEROL [Concomitant]
  7. COLESTIN AEROSOL [Concomitant]
  8. PULMOZYME AEROSOL [Concomitant]
  9. PREVACID [Concomitant]
  10. LASIX [Concomitant]
  11. REGLAN [Concomitant]
  12. POTASSIUM CHLORIDE [Concomitant]
  13. FLUCONAZOLE [Concomitant]
  14. NSYTATIN [Concomitant]

REACTIONS (6)
  - BRADYCARDIA [None]
  - BRONCHITIS [None]
  - COUGH [None]
  - NAUSEA [None]
  - OXYGEN SATURATION DECREASED [None]
  - PROCEDURAL COMPLICATION [None]
